FAERS Safety Report 18122637 (Version 3)
Quarter: 2020Q4

REPORT INFORMATION
  Report Type: Spontaneous
  Country: US (occurrence: US)
  Receive Date: 20200807
  Receipt Date: 20201007
  Transmission Date: 20210113
  Serious: No
  Sender: FDA-Public Use
  Company Number: US-LUPIN PHARMACEUTICALS INC.-2020-04109

PATIENT
  Age: 67 Year
  Sex: Female
  Weight: 60.32 kg

DRUGS (4)
  1. HYDROXYUREA. [Concomitant]
     Active Substance: HYDROXYUREA
     Indication: CHEMOTHERAPY
     Dosage: UNK, QD
     Route: 065
  2. DOXYCYCLINE CAPSULES USP100 MG [Suspect]
     Active Substance: DOXYCYCLINE
     Indication: SKIN INFECTION
     Dosage: 100 MILLIGRAM, BID
     Route: 048
     Dates: start: 20200703, end: 20200710
  3. DOXYCYCLINE CAPSULES USP100 MG [Suspect]
     Active Substance: DOXYCYCLINE
     Indication: DERMAL CYST
  4. BABY ASPIRIN [Concomitant]
     Active Substance: ASPIRIN
     Indication: PRODUCT USED FOR UNKNOWN INDICATION
     Dosage: UNK, QD
     Route: 065

REACTIONS (5)
  - Skin warm [Not Recovered/Not Resolved]
  - Sunburn [Recovered/Resolved]
  - Paraesthesia [Recovered/Resolved]
  - Skin irritation [Not Recovered/Not Resolved]
  - Burning sensation [Not Recovered/Not Resolved]

NARRATIVE: CASE EVENT DATE: 202007
